FAERS Safety Report 5299166-3 (Version None)
Quarter: 2007Q2

REPORT INFORMATION
  Report Type: 
  Country: None (occurrence: None)
  Receive Date: 20070417
  Receipt Date: 20070404
  Transmission Date: 20071010
  Serious: Yes (Disabling)
  Sender: FDA-Public Use
  Company Number: 2007GB00528

PATIENT
  Sex: Female

DRUGS (1)
  1. ARIMIDEX [Suspect]
     Route: 048
     Dates: start: 20060901, end: 20070301

REACTIONS (4)
  - EYE HAEMORRHAGE [None]
  - ILL-DEFINED DISORDER [None]
  - JOINT STIFFNESS [None]
  - TENDONITIS [None]
